FAERS Safety Report 16078789 (Version 3)
Quarter: 2019Q2

REPORT INFORMATION
  Report Type: Spontaneous
  Country: DE (occurrence: DE)
  Receive Date: 20190315
  Receipt Date: 20190401
  Transmission Date: 20190711
  Serious: Yes (Death, Other)
  Sender: FDA-Public Use
  Company Number: DE-INCYTE CORPORATION-2019IN002394

PATIENT

DRUGS (3)
  1. JAKAVI [Suspect]
     Active Substance: RUXOLITINIB
     Dosage: 15 MG, BID
     Route: 065
  2. JAKAVI [Suspect]
     Active Substance: RUXOLITINIB
     Indication: POLYCYTHAEMIA VERA
     Dosage: 20 MG, BID
     Route: 065
     Dates: start: 2011, end: 201810
  3. JAKAVI [Suspect]
     Active Substance: RUXOLITINIB
     Dosage: UNK
     Route: 065

REACTIONS (5)
  - Death [Fatal]
  - Gastric haemorrhage [Unknown]
  - Second primary malignancy [Unknown]
  - Platelet count decreased [Unknown]
  - Squamous cell carcinoma [Unknown]
